FAERS Safety Report 8789519 (Version 1)
Quarter: 2012Q4

REPORT INFORMATION
  Report Type: Spontaneous
  Country: PL (occurrence: None)
  Receive Date: 20120905
  Receipt Date: 20120905
  Transmission Date: 20130627
  Serious: Yes (Other)
  Sender: FDA-Public Use
  Company Number: FK201202530

PATIENT
  Age: 56 Year
  Sex: Female

DRUGS (2)
  1. TOPOTECAN [Suspect]
     Dosage: 0.75 mg/m2, 1 in 3 D
  2. CISPLATIN [Suspect]
     Dosage: 50 mg/m2, 1 in 3 wk

REACTIONS (6)
  - Peritoneal haemorrhage [None]
  - Genital haemorrhage [None]
  - Renal failure acute [None]
  - Blood urea increased [None]
  - Blood creatinine increased [None]
  - Hydronephrosis [None]
